FAERS Safety Report 10738459 (Version 1)
Quarter: 2015Q1

REPORT INFORMATION
  Report Type: Spontaneous
  Country: US (occurrence: None)
  Receive Date: 20150122
  Receipt Date: 20150122
  Transmission Date: 20150721
  Serious: Yes (Life-Threatening, Other)
  Sender: FDA-Public Use
  Company Number: None

PATIENT
  Age: 8 Year
  Sex: Male
  Weight: 26.31 kg

DRUGS (1)
  1. TAMIFLU [Suspect]
     Active Substance: OSELTAMIVIR PHOSPHATE
     Indication: INFLUENZA
     Dosage: 1 PILL
     Route: 048
     Dates: start: 20150121, end: 20150121

REACTIONS (5)
  - Pain [None]
  - Rash pruritic [None]
  - Swollen tongue [None]
  - Eye swelling [None]
  - Lip swelling [None]

NARRATIVE: CASE EVENT DATE: 20150121
